FAERS Safety Report 17717607 (Version 1)
Quarter: 2020Q2

REPORT INFORMATION
  Report Type: Spontaneous
  Country: IT (occurrence: IT)
  Receive Date: 20200428
  Receipt Date: 20200428
  Transmission Date: 20200714
  Serious: Yes (Hospitalization)
  Sender: FDA-Public Use
  Company Number: IT-ASTRAZENECA-2020SE44784

PATIENT
  Age: 65 Year
  Sex: Female
  Weight: 75 kg

DRUGS (10)
  1. INVEGA [Suspect]
     Active Substance: PALIPERIDONE
     Dosage: 12.0MG ONCE/SINGLE ADMINISTRATION
     Route: 048
     Dates: start: 20200309, end: 20200309
  2. COTRIMOXAZOLE [Concomitant]
     Active Substance: SULFAMETHOXAZOLE\TRIMETHOPRIM
     Route: 065
     Dates: start: 20200310, end: 20200310
  3. LEVOTHYROXINE SODIUM. [Concomitant]
     Active Substance: LEVOTHYROXINE SODIUM
     Route: 048
     Dates: start: 20200310, end: 20200310
  4. ZOLPIDEM TARTRATE. [Concomitant]
     Active Substance: ZOLPIDEM TARTRATE
     Dates: start: 20200309, end: 20200309
  5. SEROQUEL [Suspect]
     Active Substance: QUETIAPINE FUMARATE
     Dosage: 100.0MG ONCE/SINGLE ADMINISTRATION
     Route: 048
     Dates: start: 20200309, end: 20200309
  6. GABAPENTIN. [Concomitant]
     Active Substance: GABAPENTIN
     Route: 065
     Dates: start: 20200310, end: 20200310
  7. ZOLOFT [Concomitant]
     Active Substance: SERTRALINE HYDROCHLORIDE
     Dosage: 50.0MG UNKNOWN
     Route: 048
     Dates: start: 20200310, end: 20200310
  8. METHADONE HYDROCHLORIDE. [Concomitant]
     Active Substance: METHADONE HYDROCHLORIDE
     Dosage: 40.0MG UNKNOWN
     Route: 048
     Dates: start: 20200310, end: 20200310
  9. AKINETON [Suspect]
     Active Substance: BIPERIDEN HYDROCHLORIDE
     Dosage: 4.0MG INTERMITTENT
     Route: 048
     Dates: start: 20200309, end: 20200309
  10. LORAZEPAM. [Concomitant]
     Active Substance: LORAZEPAM
     Dates: start: 20200309, end: 20200309

REACTIONS (5)
  - Hypotension [Unknown]
  - Asthenia [Unknown]
  - Headache [Unknown]
  - Product administration error [Unknown]
  - Bradycardia [Unknown]

NARRATIVE: CASE EVENT DATE: 20200310
